FAERS Safety Report 4970994-4 (Version None)
Quarter: 2006Q2

REPORT INFORMATION
  Report Type: 
  Country: None (occurrence: None)
  Receive Date: 20060411
  Receipt Date: 20060411
  Transmission Date: 20061013
  Serious: No
  Sender: FDA-Public Use
  Company Number: None

PATIENT
  Age: 54 Year
  Sex: Male

DRUGS (4)
  1. AMBIEN [Suspect]
     Dosage: 10 MG PO HS PRN [5. RX'S DISPENSED FROM 6/8/05-}2/24/06]
     Route: 048
  2. VICODIN [Concomitant]
  3. CITALOPRAM HYDROBROMIDE [Concomitant]
  4. NABUMETONE [Concomitant]

REACTIONS (3)
  - ABNORMAL SLEEP-RELATED EVENT [None]
  - CONTUSION [None]
  - SLEEP WALKING [None]
